FAERS Safety Report 4932301-2 (Version None)
Quarter: 2006Q1

REPORT INFORMATION
  Report Type: 
  Country: None (occurrence: None)
  Receive Date: 20060228
  Receipt Date: 20060213
  Transmission Date: 20060701
  Serious: Yes (Hospitalization)
  Sender: FDA-Public Use
  Company Number: SGB1-2006-00063

PATIENT
  Age: 75 Year
  Sex: Female

DRUGS (15)
  1. LANTHANUM CARBONATE(LANTHANUM CARBONATE) TABLET CHEWABLE [Suspect]
     Indication: HYPERPHOSPHATAEMIA
     Dosage: 3000MG DAILY, ORAL
     Route: 048
     Dates: start: 20050503
  2. CARVEDILOL [Concomitant]
  3. FUROSEMIDE [Concomitant]
  4. SHINLUCK (SODIUM PICOSULFATE) [Concomitant]
  5. TINELAC /00571901/ (SENNOSIDE A+B) [Concomitant]
  6. LIPOVAS /00848101/ (SIMVASTATIN) [Concomitant]
  7. AMOBAN (ZOPICLONE) [Concomitant]
  8. ASPIRIN [Concomitant]
  9. TICLOPIDINE HCL [Concomitant]
  10. AZULFIDINE [Concomitant]
  11. ISOSORBIDE DINITRATE [Concomitant]
  12. MUCOSTA (REBAMIPIDE) [Concomitant]
  13. LORCAM (LORNOXICAM) [Concomitant]
  14. CALCIUM LACTATE (CALCIUM LACTATE) [Concomitant]
  15. FAMOTIDINE [Concomitant]

REACTIONS (8)
  - AORTIC VALVE CALCIFICATION [None]
  - AORTIC VALVE INCOMPETENCE [None]
  - AORTIC VALVE STENOSIS [None]
  - CARDIAC FAILURE [None]
  - CHEST DISCOMFORT [None]
  - MITRAL VALVE INCOMPETENCE [None]
  - TRICUSPID VALVE INCOMPETENCE [None]
  - WEIGHT DECREASED [None]
